FAERS Safety Report 4505367-1 (Version None)
Quarter: 2004Q4

REPORT INFORMATION
  Report Type: 
  Country: None (occurrence: None)
  Receive Date: 20041118
  Receipt Date: 20041118
  Transmission Date: 20050328
  Serious: No
  Sender: FDA-Public Use
  Company Number: None

PATIENT
  Age: 58 Year
  Sex: Male
  Weight: 99.7913 kg

DRUGS (3)
  1. ADVAIR DISKUS 250/50 [Suspect]
     Indication: COLLAPSE OF LUNG
     Dosage: 2X DAY  MOUTH
     Route: 048
     Dates: start: 20031120, end: 20031205
  2. ADVAIR DISKUS 250/50 [Suspect]
     Indication: PAIN
     Dosage: 2X DAY  MOUTH
     Route: 048
     Dates: start: 20031120, end: 20031205
  3. WELLBUTRIN [Concomitant]

REACTIONS (2)
  - BLOOD PRESSURE DECREASED [None]
  - PHARMACEUTICAL PRODUCT COMPLAINT [None]
